FAERS Safety Report 18371858 (Version 2)
Quarter: 2021Q3

REPORT INFORMATION
  Report Type: Report from Study
  Country: JP (occurrence: JP)
  Receive Date: 20201012
  Receipt Date: 20210907
  Transmission Date: 20211014
  Serious: Yes (Death, Hospitalization, Other)
  Sender: FDA-Public Use
  Company Number: JP-INCYTE CORPORATION-2020IN009603

PATIENT

DRUGS (9)
  1. JAKAVI [Suspect]
     Active Substance: RUXOLITINIB
     Dosage: 10 MG, BID
     Route: 048
     Dates: start: 20150203, end: 20150311
  2. PREDONINE [Concomitant]
     Active Substance: PREDNISOLONE
     Indication: PRIMARY MYELOFIBROSIS
     Dosage: 10 MG
     Route: 065
     Dates: start: 20150423
  3. HYDREA [Concomitant]
     Active Substance: HYDROXYUREA
     Dosage: 500 MG
     Route: 048
     Dates: start: 20150428
  4. HYDREA [Concomitant]
     Active Substance: HYDROXYUREA
     Dosage: 1000 MG
     Route: 048
     Dates: end: 20161116
  5. JAKAVI [Suspect]
     Active Substance: RUXOLITINIB
     Indication: PRIMARY MYELOFIBROSIS
     Dosage: 15 MG, BID
     Route: 048
     Dates: start: 20141105, end: 20150203
  6. PREDONINE [Concomitant]
     Active Substance: PREDNISOLONE
     Dosage: 500 MG
     Route: 048
     Dates: start: 20150428
  7. PREDONINE [Concomitant]
     Active Substance: PREDNISOLONE
     Dosage: 10 MG
     Route: 065
     Dates: end: 20161209
  8. HYDREA [Concomitant]
     Active Substance: HYDROXYUREA
     Indication: PRIMARY MYELOFIBROSIS
     Dosage: 1000 MG
     Route: 048
     Dates: end: 20141020
  9. HYDREA [Concomitant]
     Active Substance: HYDROXYUREA
     Dosage: 1000 MG
     Route: 048
     Dates: start: 20150324, end: 20150427

REACTIONS (7)
  - Sepsis [Fatal]
  - Malignant neoplasm progression [Recovered/Resolved]
  - Neutrophil count decreased [Not Recovered/Not Resolved]
  - Oesophageal varices haemorrhage [Recovering/Resolving]
  - Blood alkaline phosphatase increased [Unknown]
  - Cardiac failure [Recovering/Resolving]
  - Primary myelofibrosis [Recovered/Resolved]

NARRATIVE: CASE EVENT DATE: 20141225
